FAERS Safety Report 25903234 (Version 1)
Quarter: 2025Q4

REPORT INFORMATION
  Report Type: Spontaneous
  Country: US (occurrence: US)
  Receive Date: 20251009
  Receipt Date: 20251009
  Transmission Date: 20260118
  Serious: Yes (Other)
  Sender: PROACTIV
  Company Number: US-The Proactiv LLC-2186266

PATIENT

DRUGS (3)
  1. PROACTIV CLEAR SKIN SPF 30 [Suspect]
     Active Substance: AVOBENZONE\OCTISALATE\OCTOCRYLENE
  2. COSMETICS [Suspect]
     Active Substance: COSMETICS
  3. COSMETICS [Suspect]
     Active Substance: COSMETICS

REACTIONS (1)
  - Condition aggravated [Unknown]
